FAERS Safety Report 4650096-7 (Version None)
Quarter: 2005Q2

REPORT INFORMATION
  Report Type: 
  Country: None (occurrence: None)
  Receive Date: 20050428
  Receipt Date: 20050411
  Transmission Date: 20051028
  Serious: Yes (Hospitalization)
  Sender: FDA-Public Use
  Company Number: 12930541

PATIENT
  Age: 39 Year
  Sex: Male

DRUGS (9)
  1. REVIA [Suspect]
     Indication: PSYCHOTIC DISORDER
     Dosage: 50 MILLIGRAM 1 DAY ORAL
     Route: 048
     Dates: start: 20041220, end: 20050114
  2. QUESTRAN [Suspect]
     Indication: GALLBLADDER DISORDER
     Dosage: 4 GRAM 3/1 DAY ORAL
     Route: 048
     Dates: start: 20041220, end: 20050114
  3. VIDEX [Suspect]
     Dosage: 100 MILLIGRAM 4/1 DAY ORAL
     Route: 048
     Dates: start: 20040609, end: 20041221
  4. VIRAMUNE [Suspect]
     Dosage: 200 MILLIGRAM 2/1 DAY
     Dates: start: 20000815, end: 20041221
  5. ZIAGEN [Suspect]
     Dosage: 300 MILLIGRAM 2/1 DAY
     Dates: start: 20000815, end: 20041221
  6. PERIKABIVEN (AMINO ACID+CARBOHYDRATE+LIPID+ELECTROLYTE INFUSION) [Concomitant]
  7. SMECTA (SMECTITE BEIDELLITIQUE) [Concomitant]
  8. ATARAX [Concomitant]
  9. TRANXENE [Concomitant]

REACTIONS (7)
  - ASCITES [None]
  - DEHYDRATION [None]
  - DIALYSIS [None]
  - GENERAL PHYSICAL CONDITION ABNORMAL [None]
  - HYPERBILIRUBINAEMIA [None]
  - RENAL FAILURE ACUTE [None]
  - RENAL TUBULAR DISORDER [None]
